FAERS Safety Report 23422727 (Version 2)
Quarter: 2024Q1

REPORT INFORMATION
  Report Type: Spontaneous
  Country: CA (occurrence: CA)
  Receive Date: 20240119
  Receipt Date: 20240130
  Transmission Date: 20240410
  Serious: Yes (Death, Hospitalization, Other)
  Sender: FDA-Public Use
  Company Number: CA-FreseniusKabi-FK202400954

PATIENT
  Age: 67 Year
  Sex: Female

DRUGS (2)
  1. ETOPOSIDE [Suspect]
     Active Substance: ETOPOSIDE
     Indication: Small cell lung cancer
     Dosage: DOSAGE FORM- LIQUID INTRAVENOUS
     Route: 065
  2. ETOPOSIDE [Suspect]
     Active Substance: ETOPOSIDE
     Dosage: DOSAGE FORM- LIQUID INTRAVENOUS
     Route: 065

REACTIONS (4)
  - Acute coronary syndrome [Fatal]
  - Acute myocardial infarction [Fatal]
  - Cardiac disorder [Recovering/Resolving]
  - Lung disorder [Recovering/Resolving]
